FAERS Safety Report 15252352 (Version 4)
Quarter: 2018Q4

REPORT INFORMATION
  Report Type: Spontaneous
  Country: US (occurrence: US)
  Receive Date: 20180807
  Receipt Date: 20181005
  Transmission Date: 20190204
  Serious: Yes (Hospitalization)
  Sender: FDA-Public Use
  Company Number: US-CELGENEUS-USA-20180606348

PATIENT
  Sex: Male

DRUGS (2)
  1. REVLIMID [Suspect]
     Active Substance: LENALIDOMIDE
     Dosage: 25 MILLIGRAM
     Route: 048
     Dates: start: 201808
  2. REVLIMID [Suspect]
     Active Substance: LENALIDOMIDE
     Indication: PLASMA CELL MYELOMA
     Dosage: 25 MILLIGRAM
     Route: 048
     Dates: start: 20180530

REACTIONS (7)
  - Hypogeusia [Unknown]
  - Dehydration [Unknown]
  - Weight decreased [Unknown]
  - Gastrointestinal motility disorder [Unknown]
  - Fatigue [Unknown]
  - Decreased appetite [Unknown]
  - Nausea [Unknown]

NARRATIVE: CASE EVENT DATE: 2018
